FAERS Safety Report 5950423-4 (Version None)
Quarter: 2008Q4

REPORT INFORMATION
  Report Type: 
  Country: None (occurrence: None)
  Receive Date: 20081112
  Receipt Date: 20081030
  Transmission Date: 20090506
  Serious: Yes (Hospitalization, Other)
  Sender: FDA-Public Use
  Company Number: JP-MERCK-0809USA04992

PATIENT
  Age: 78 Year
  Sex: Male

DRUGS (10)
  1. PEPCID RPD [Suspect]
     Indication: GASTRIC ULCER
     Route: 048
     Dates: start: 20080321
  2. HERBS (UNSPECIFIED) [Suspect]
     Indication: DEMENTIA
     Route: 048
     Dates: start: 20080307, end: 20080819
  3. OPALMON [Suspect]
     Route: 048
     Dates: start: 20000101, end: 20080819
  4. PLAVIX [Suspect]
     Indication: PROPHYLAXIS
     Route: 048
     Dates: start: 20080307, end: 20080819
  5. PLAVIX [Suspect]
     Indication: CEREBRAL INFARCTION
     Route: 048
     Dates: start: 20080307, end: 20080819
  6. ARICEPT [Suspect]
     Indication: DEMENTIA
     Route: 048
     Dates: start: 20080307
  7. EURODIN [Suspect]
     Indication: INSOMNIA
     Route: 048
     Dates: start: 20080307
  8. NEUROTROPIN [Suspect]
     Indication: OSTEOARTHRITIS
     Route: 048
     Dates: start: 20000101
  9. LOXONIN [Suspect]
     Indication: OSTEOARTHRITIS
     Route: 048
     Dates: start: 20000101
  10. MUCOSTA [Suspect]
     Indication: GASTRIC ULCER
     Route: 048
     Dates: start: 20000101

REACTIONS (1)
  - INTERSTITIAL LUNG DISEASE [None]
